FAERS Safety Report 13609069 (Version 1)
Quarter: 2017Q2

REPORT INFORMATION
  Report Type: Spontaneous
  Country: IT (occurrence: IT)
  Receive Date: 20170602
  Receipt Date: 20170602
  Transmission Date: 20170830
  Serious: Yes (Disabling)
  Sender: FDA-Public Use
  Company Number: PHHY2017IT079150

PATIENT
  Age: 55 Year
  Sex: Male

DRUGS (2)
  1. AREDIA [Suspect]
     Active Substance: PAMIDRONATE DISODIUM
     Indication: PRODUCT USED FOR UNKNOWN INDICATION
     Route: 065
     Dates: start: 20121001, end: 20150501
  2. ZOMETA [Suspect]
     Active Substance: ZOLEDRONIC ACID
     Indication: PRODUCT USED FOR UNKNOWN INDICATION
     Dosage: 4 MG, QMO (MONTHLY)
     Route: 065
     Dates: start: 20150501, end: 20161001

REACTIONS (4)
  - Gingival pain [Not Recovered/Not Resolved]
  - Gingival swelling [Unknown]
  - Decubitus ulcer [Not Recovered/Not Resolved]
  - Exposed bone in jaw [Unknown]

NARRATIVE: CASE EVENT DATE: 20161101
